FAERS Safety Report 8282082-2 (Version None)
Quarter: 2012Q2

REPORT INFORMATION
  Report Type: 
  Country: None (occurrence: None)
  Receive Date: 20120413
  Receipt Date: 20120409
  Transmission Date: 20120825
  Serious: Yes (Life-Threatening, Hospitalization, Disabling)
  Sender: FDA-Public Use
  Company Number: US-BAYER-2012-026464

PATIENT
  Age: 35 Year
  Sex: Female
  Weight: 79.819 kg

DRUGS (5)
  1. MULTI-VITAMIN [Concomitant]
  2. CALCIUM CARBONATE [Concomitant]
  3. BEYAZ [Suspect]
     Indication: CONTRACEPTION
     Dosage: 1 DF, QD
     Route: 048
     Dates: start: 20110515, end: 20110720
  4. SYNTHROID [Concomitant]
  5. L-LYSINE [Concomitant]

REACTIONS (8)
  - DYSPNOEA [None]
  - PAIN IN EXTREMITY [None]
  - CEREBRAL ARTERY EMBOLISM [None]
  - MUSCULAR WEAKNESS [None]
  - PULMONARY EMBOLISM [None]
  - DEEP VEIN THROMBOSIS [None]
  - FACIAL PARESIS [None]
  - BASAL GANGLIA INFARCTION [None]
